FAERS Safety Report 17224314 (Version 1)
Quarter: 2020Q1

REPORT INFORMATION
  Report Type: Spontaneous
  Country: NL (occurrence: NL)
  Receive Date: 20200102
  Receipt Date: 20200102
  Transmission Date: 20200409
  Serious: Yes (Hospitalization)
  Sender: FDA-Public Use
  Company Number: NL-TEVA-2019-NL-1160460

PATIENT
  Age: 68 Year
  Sex: Male
  Weight: 80 kg

DRUGS (1)
  1. CLOSAPINE 50 MG [Suspect]
     Active Substance: CLOZAPINE
     Indication: DEMENTIA
     Dosage: 50 MILLIGRAM DAILY;
     Dates: start: 20191031

REACTIONS (1)
  - Aggression [Recovered/Resolved with Sequelae]

NARRATIVE: CASE EVENT DATE: 20191102
